FAERS Safety Report 8813763 (Version 3)
Quarter: 2012Q4

REPORT INFORMATION
  Report Type: 
  Country: IT (occurrence: IT)
  Receive Date: 20120928
  Receipt Date: 20121012
  Transmission Date: 20130627
  Serious: Yes (Hospitalization)
  Sender: FDA-Public Use
  Company Number: IT-BRISTOL-MYERS SQUIBB COMPANY-16974974

PATIENT
  Age: 81 Year
  Sex: Male

DRUGS (2)
  1. COUMADIN TABS 5 MG [Suspect]
     Indication: ATRIAL FIBRILLATION
     Dates: start: 20100101, end: 20120827
  2. APROVEL TABS 300 MG [Concomitant]
     Route: 048

REACTIONS (3)
  - Head injury [Unknown]
  - Retroperitoneal haematoma [Recovered/Resolved]
  - Anaemia [Recovered/Resolved]
